FAERS Safety Report 6638631-0 (Version None)
Quarter: 2010Q1

REPORT INFORMATION
  Report Type: 
  Country: None (occurrence: None)
  Receive Date: 20100301
  Receipt Date: 20090624
  Transmission Date: 20100710
  Serious: Yes (Other)
  Sender: FDA-Public Use
  Company Number: RB-17326-2009

PATIENT
  Age: 24 Month

DRUGS (1)
  1. SUBOXONE [Suspect]
     Dosage: CHILD PUT 1/2 SUBLINGUAL TABLET IN MOUTH AND IT WAS IMMEDIATELY REMOVED

REACTIONS (1)
  - ACCIDENTAL EXPOSURE [None]
